FAERS Safety Report 6532547-6 (Version None)
Quarter: 2009Q4

REPORT INFORMATION
  Report Type: 
  Country: None (occurrence: None)
  Receive Date: 20091224
  Receipt Date: 20091218
  Transmission Date: 20100525
  Serious: No
  Sender: FDA-Public Use
  Company Number: US-144899

PATIENT
  Sex: Female

DRUGS (1)
  1. WINRHO SDF LIQUID [Suspect]
     Indication: IDIOPATHIC THROMBOCYTOPENIC PURPURA
     Dates: start: 20091215, end: 20091215

REACTIONS (3)
  - ANAEMIA [None]
  - BLOOD BILIRUBIN UNCONJUGATED INCREASED [None]
  - FATIGUE [None]
